FAERS Safety Report 8189819-1 (Version None)
Quarter: 2012Q1

REPORT INFORMATION
  Report Type: 
  Country: None (occurrence: None)
  Receive Date: 20120307
  Receipt Date: 20110805
  Transmission Date: 20120608
  Serious: Yes (Other)
  Sender: FDA-Public Use
  Company Number: US-GLAXOSMITHKLINE-A0939920A

PATIENT
  Age: 47 Year
  Sex: Male

DRUGS (4)
  1. SINEMET [Concomitant]
  2. AMANTADINE HCL [Concomitant]
  3. REQUIP [Suspect]
     Indication: PARKINSON'S DISEASE
     Dosage: 16MG VARIABLE DOSE
     Route: 048
     Dates: start: 20030101, end: 20110701
  4. REQUIP XL [Suspect]
     Indication: PARKINSON'S DISEASE
     Dosage: 12MG PER DAY
     Route: 048
     Dates: start: 20110701

REACTIONS (2)
  - HALLUCINATION, AUDITORY [None]
  - DRUG EFFECT DECREASED [None]
